FAERS Safety Report 5895784-X (Version None)
Quarter: 2008Q3

REPORT INFORMATION
  Report Type: 
  Country: None (occurrence: None)
  Receive Date: 20080924
  Receipt Date: 20080919
  Transmission Date: 20090109
  Serious: Yes (Death, Life-Threatening, Hospitalization)
  Sender: FDA-Public Use
  Company Number: IT-WYE-G01440108

PATIENT
  Sex: Female

DRUGS (6)
  1. TEMSIROLIMUS [Suspect]
     Indication: RENAL CELL CARCINOMA
     Route: 042
     Dates: start: 20071120, end: 20080403
  2. LENDORMIN [Concomitant]
     Indication: INSOMNIA
     Dosage: NOT PROVIDED
     Dates: start: 20060501
  3. CIPRALEX [Concomitant]
     Indication: DEPRESSION
     Dosage: NOT PROVIDED
     Dates: start: 20060501
  4. ZANIDIP [Concomitant]
     Indication: HYPERTENSION
     Dosage: NOT PROVIDED
     Dates: start: 20070501
  5. LIMICAN [Concomitant]
     Indication: NAUSEA
     Dosage: NOT PROVIDED
     Dates: start: 20080303
  6. RAMIPRIL [Concomitant]
     Indication: HYPERTENSION
     Dosage: NOT PROVIDED
     Dates: start: 20060501

REACTIONS (4)
  - DISEASE PROGRESSION [None]
  - ENTEROCOCCAL SEPSIS [None]
  - HEPATIC FAILURE [None]
  - LIVER ABSCESS [None]
